FAERS Safety Report 5570197-9 (Version None)
Quarter: 2007Q4

REPORT INFORMATION
  Report Type: 
  Country: None (occurrence: None)
  Receive Date: 20071220
  Receipt Date: 20071211
  Transmission Date: 20080405
  Serious: Yes (Life-Threatening, Hospitalization)
  Sender: FDA-Public Use
  Company Number: PFIZER INC-2007088925

PATIENT
  Sex: Male
  Weight: 125 kg

DRUGS (10)
  1. EXUBERA [Suspect]
     Indication: TYPE 2 DIABETES MELLITUS
     Dosage: FREQ:3X:DAILY
     Route: 055
     Dates: start: 20060811, end: 20071019
  2. LANTUS [Suspect]
     Indication: TYPE 2 DIABETES MELLITUS
     Route: 058
     Dates: start: 20050426
  3. GLUCOPHAGE [Suspect]
     Route: 048
     Dates: start: 20050829
  4. NEBILET [Concomitant]
     Route: 048
  5. CARMEN [Concomitant]
     Route: 048
  6. SORTIS [Concomitant]
     Dosage: DAILY DOSE:40MG
     Route: 048
     Dates: start: 20050510
  7. THIOCTACID [Concomitant]
     Route: 048
     Dates: start: 20060607
  8. ASPIRIN [Concomitant]
     Route: 048
     Dates: start: 20050510
  9. COAPROVEL [Concomitant]
     Dosage: DAILY DOSE:300MG
     Dates: start: 20060822
  10. ISMO [Concomitant]
     Route: 048
     Dates: start: 20050510

REACTIONS (2)
  - CORONARY ARTERY STENOSIS [None]
  - LUNG NEOPLASM MALIGNANT [None]
